FAERS Safety Report 6940353-3 (Version None)
Quarter: 2010Q3

REPORT INFORMATION
  Report Type: 
  Country: None (occurrence: None)
  Receive Date: 20100825
  Receipt Date: 20100423
  Transmission Date: 20110219
  Serious: No
  Sender: FDA-Public Use
  Company Number: US-PFIZER INC-2010029474

PATIENT
  Age: 9 Year
  Sex: Female

DRUGS (1)
  1. NEURONTIN [Suspect]
     Dosage: 3 TEASPOONFULS, AT BEDTIME, DAILY
     Route: 048

REACTIONS (1)
  - DYSGEUSIA [None]
